FAERS Safety Report 24088712 (Version 1)
Quarter: 2024Q3

REPORT INFORMATION
  Report Type: Spontaneous
  Country: GB (occurrence: GB)
  Receive Date: 20240715
  Receipt Date: 20240715
  Transmission Date: 20241016
  Serious: Yes (Other)
  Sender: ESPERION THERAPEUTICS
  Company Number: None

PATIENT
  Age: 55 Year
  Sex: Female
  Weight: 83 kg

DRUGS (17)
  1. BEMPEDOIC ACID\EZETIMIBE [Suspect]
     Active Substance: BEMPEDOIC ACID\EZETIMIBE
     Indication: Product used for unknown indication
     Dosage: 180MG/10MG
     Route: 065
  2. HYDRALAZINE [Concomitant]
     Active Substance: HYDRALAZINE HYDROCHLORIDE
     Indication: Ill-defined disorder
     Dosage: 2 DF, (2 DAY INTERVAL)
     Route: 065
     Dates: start: 20230918
  3. EZETIMIBE [Concomitant]
     Active Substance: EZETIMIBE
     Indication: Ill-defined disorder
     Dosage: 1 DF, QD
     Route: 065
     Dates: start: 20240103
  4. BISACODYL [Concomitant]
     Active Substance: BISACODYL
     Indication: Ill-defined disorder
     Dosage: TAKE ONE OR TWO TABLETS AT NIGHT
     Route: 065
     Dates: start: 20230918
  5. CANDESARTAN [Concomitant]
     Active Substance: CANDESARTAN
     Indication: Ill-defined disorder
     Dosage: 1 DF, QD
     Route: 065
     Dates: start: 20230918
  6. EPLERENONE [Concomitant]
     Active Substance: EPLERENONE
     Indication: Ill-defined disorder
     Dosage: 12.5 MG, QD (TAKE HALF A TABLET (12.5MG) DAILY)
     Route: 065
     Dates: start: 20230918
  7. FIXAPOST [Concomitant]
     Indication: Ill-defined disorder
     Dosage: 1 DF, QD (ONE DROP AT NIGHT TO BOTH EYES)
     Route: 065
     Dates: start: 20230918
  8. HALF SECURON [Concomitant]
     Indication: Ill-defined disorder
     Dosage: 1 DF, QD
     Route: 065
     Dates: start: 20230918
  9. LACTULOSE [Concomitant]
     Active Substance: LACTULOSE
     Indication: Ill-defined disorder
     Dosage: TAKE 10-20ML UP TO TWICE DAILY, REDUCE AS MOTIO..
     Route: 065
     Dates: start: 20230918
  10. TIMOLOL [Concomitant]
     Active Substance: TIMOLOL
     Indication: Ill-defined disorder
     Dosage: 1 DF, QD (ONE DROP ONCE DAILY TO EACH EYE)
     Route: 065
     Dates: start: 20230918
  11. LEVOTHYROXINE [Concomitant]
     Active Substance: LEVOTHYROXINE\LEVOTHYROXINE SODIUM
     Indication: Ill-defined disorder
     Dosage: 1 DF, QD
     Route: 065
     Dates: start: 20230918
  12. ACETAMINOPHEN [Concomitant]
     Active Substance: ACETAMINOPHEN
     Indication: Ill-defined disorder
     Dosage: 2 DF, QID (TAKE 2 TABLETS UP TO 4 TIMES/DAY)
     Route: 065
     Dates: start: 20230918
  13. PREGABALIN [Concomitant]
     Active Substance: PREGABALIN
     Indication: Ill-defined disorder
     Dosage: 1 DF (2 DAY INTERVAL)
     Route: 065
     Dates: start: 20230918
  14. HYALURONATE SODIUM\TREHALOSE [Concomitant]
     Active Substance: HYALURONATE SODIUM\TREHALOSE
     Indication: Ill-defined disorder
     Dosage: 1 DROP THREE TO FOUR TIMES TO BOTH EYES
     Route: 065
     Dates: start: 20230918
  15. VAGIRUX [Concomitant]
     Indication: Ill-defined disorder
     Dosage: 1 DF, ONCE EVERY 2 WK (INSERT ONE TWICE A WEEK WITH SAME APPLICATOR AS)
     Route: 065
     Dates: start: 20230918
  16. VOLTAROL [Concomitant]
     Active Substance: DICLOFENAC SODIUM
     Indication: Ill-defined disorder
     Dosage: 1 DF (2 DAY INTERVAL) APPLY TWICE DAILY
     Route: 065
     Dates: start: 20231205
  17. BEMPEDOIC ACID [Concomitant]
     Active Substance: BEMPEDOIC ACID
     Indication: Ill-defined disorder
     Dosage: 1 DF, QD
     Route: 065
     Dates: start: 20240612, end: 20240704

REACTIONS (4)
  - Blood pressure increased [Recovered/Resolved]
  - Headache [Recovered/Resolved]
  - Rash [Recovered/Resolved]
  - Fatigue [Unknown]
